FAERS Safety Report 7798936-7 (Version None)
Quarter: 2011Q4

REPORT INFORMATION
  Report Type: 
  Country: None (occurrence: None)
  Receive Date: 20111006
  Receipt Date: 20111001
  Transmission Date: 20120403
  Serious: No
  Sender: FDA-Public Use
  Company Number: US-PFIZER INC-2011234499

PATIENT
  Age: 28 Year
  Sex: Female
  Weight: 77.098 kg

DRUGS (2)
  1. ADVIL PM [Suspect]
     Indication: PAIN
     Dosage: UNK
  2. ADVIL PM [Suspect]
     Indication: MUSCLE SPASMS

REACTIONS (4)
  - SOMNOLENCE [None]
  - OVERDOSE [None]
  - HYPERSOMNIA [None]
  - FATIGUE [None]
